FAERS Safety Report 5301702-5 (Version None)
Quarter: 2007Q2

REPORT INFORMATION
  Report Type: 
  Country: None (occurrence: None)
  Receive Date: 20070419
  Receipt Date: 20070406
  Transmission Date: 20071010
  Serious: Yes (Other)
  Sender: FDA-Public Use
  Company Number: PHFR2007GB01295

PATIENT
  Age: 19 Year
  Sex: Female

DRUGS (5)
  1. MESALAZINE [Concomitant]
     Indication: CROHN'S DISEASE
     Route: 065
  2. PREDNISOLONE [Concomitant]
     Route: 065
  3. METRONIDAZOLE [Concomitant]
     Route: 065
  4. DEPAKOTE [Concomitant]
     Route: 065
  5. CLOZARIL [Suspect]
     Indication: SCHIZOPHRENIA
     Route: 048
     Dates: start: 20070226

REACTIONS (4)
  - ANAEMIA [None]
  - ELECTROCARDIOGRAM QT CORRECTED INTERVAL PROLONGED [None]
  - HAEMOGLOBIN DECREASED [None]
  - TACHYCARDIA [None]
